FAERS Safety Report 6258800-1 (Version None)
Quarter: 2009Q3

REPORT INFORMATION
  Report Type: 
  Country: None (occurrence: None)
  Receive Date: 20090707
  Receipt Date: 20090626
  Transmission Date: 20100115
  Serious: Yes (Other)
  Sender: FDA-Public Use
  Company Number: US-MERCK-0709USA00201

PATIENT
  Age: 40 Year
  Sex: Female
  Weight: 72 kg

DRUGS (2)
  1. FOSAMAX [Suspect]
     Indication: OSTEOPOROSIS
     Route: 048
     Dates: start: 20020101, end: 20060101
  2. [THERAPY UNSPECIFIED] [Concomitant]
     Route: 065
     Dates: start: 19940101

REACTIONS (32)
  - CENTRAL NERVOUS SYSTEM LESION [None]
  - CERVICOBRACHIAL SYNDROME [None]
  - CONFUSIONAL STATE [None]
  - DENTAL CARIES [None]
  - DEPRESSED LEVEL OF CONSCIOUSNESS [None]
  - DIZZINESS [None]
  - DRUG HYPERSENSITIVITY [None]
  - DYSARTHRIA [None]
  - FATIGUE [None]
  - GASTRIC DISORDER [None]
  - GINGIVAL DISORDER [None]
  - HEADACHE [None]
  - HYPERAESTHESIA [None]
  - HYPOAESTHESIA [None]
  - IMPAIRED HEALING [None]
  - MALAISE [None]
  - OBESITY [None]
  - ORAL DISORDER [None]
  - PAIN [None]
  - PARAESTHESIA [None]
  - PERIODONTAL DISEASE [None]
  - SOMNOLENCE [None]
  - SWELLING [None]
  - SYNCOPE [None]
  - TEMPOROMANDIBULAR JOINT SYNDROME [None]
  - TOOTH ABSCESS [None]
  - TOOTH LOSS [None]
  - TOOTHACHE [None]
  - TREMOR [None]
  - TRISMUS [None]
  - UTERINE DISORDER [None]
  - WEIGHT INCREASED [None]
